FAERS Safety Report 4534519-X (Version None)
Quarter: 2004Q4

REPORT INFORMATION
  Report Type: 
  Country: None (occurrence: None)
  Receive Date: 20041221
  Receipt Date: 20041221
  Transmission Date: 20050328
  Serious: No
  Sender: FDA-Public Use
  Company Number: None

PATIENT
  Sex: Female
  Weight: 3.2 kg

DRUGS (2)
  1. BAROSPERSE BARIUM SULFATE     LAFAYETTE PHARMACEUTICAL [Suspect]
     Indication: GASTROOESOPHAGEAL REFLUX DISEASE
     Dates: start: 20041116, end: 20041116
  2. BAROSPERSE BARIUM SULFATE     LAFAYETTE PHARMACEUTICAL [Suspect]
     Indication: X-RAY WITH CONTRAST UPPER GASTROINTESTINAL TRACT
     Dates: start: 20041116, end: 20041116

REACTIONS (4)
  - INDIRECT INFECTION TRANSMISSION [None]
  - PHARMACEUTICAL PRODUCT COMPLAINT [None]
  - PSEUDOMONAS INFECTION [None]
  - SPUTUM CULTURE POSITIVE [None]
